FAERS Safety Report 6287858-9 (Version None)
Quarter: 2009Q3

REPORT INFORMATION
  Report Type: 
  Country: None (occurrence: None)
  Receive Date: 20090729
  Receipt Date: 20090717
  Transmission Date: 20100115
  Serious: Yes (Other)
  Sender: FDA-Public Use
  Company Number: US-WYE-H10081409

PATIENT
  Age: 30 Year
  Sex: Female

DRUGS (5)
  1. PRISTIQ [Suspect]
     Indication: DEPRESSION
     Route: 048
     Dates: start: 20090629
  2. PRISTIQ [Interacting]
     Indication: ANXIETY
  3. NORGESTIMATE AND ETHINYL ESTRADIOL [Concomitant]
  4. PROGESTERONE [Concomitant]
  5. MAXALT [Interacting]
     Indication: MIGRAINE
     Dosage: UNKNOWN

REACTIONS (4)
  - DRUG INTERACTION [None]
  - FEELING COLD [None]
  - FEELING HOT [None]
  - RESTLESSNESS [None]
